FAERS Safety Report 4747102-8 (Version None)
Quarter: 2005Q3

REPORT INFORMATION
  Report Type: 
  Country: None (occurrence: None)
  Receive Date: 20050815
  Receipt Date: 20050803
  Transmission Date: 20060218
  Serious: Yes (Hospitalization)
  Sender: FDA-Public Use
  Company Number: CIP05001826

PATIENT
  Age: 19 Year
  Sex: Male

DRUGS (1)
  1. ASACOL [Suspect]
     Indication: INFLAMMATORY BOWEL DISEASE
     Dosage: ORAL
     Route: 048

REACTIONS (4)
  - ATRIAL FLUTTER [None]
  - DYSPNOEA [None]
  - HEART RATE IRREGULAR [None]
  - PERICARDIAL EFFUSION [None]
